FAERS Safety Report 4846115-5 (Version None)
Quarter: 2005Q4

REPORT INFORMATION
  Report Type: 
  Country: None (occurrence: None)
  Receive Date: 20051201
  Receipt Date: 20051118
  Transmission Date: 20060501
  Serious: Yes (Hospitalization, Other)
  Sender: FDA-Public Use
  Company Number: 2005160772

PATIENT
  Age: 39 Year
  Sex: Male

DRUGS (12)
  1. ZOLOFT [Suspect]
     Indication: ILL-DEFINED DISORDER
  2. RISPERDAL [Suspect]
     Indication: ILL-DEFINED DISORDER
  3. BACLOFEN [Concomitant]
  4. DIFLUCAN (FLUCONAZOLE) [Concomitant]
  5. ZINC (ZINC) [Concomitant]
  6. OMEPRAZOLE [Concomitant]
  7. VITAMIN C (VITAMIN C) [Concomitant]
  8. LASIX [Concomitant]
  9. VANCOMYCIN [Concomitant]
  10. MAXAQUIN [Concomitant]
  11. ALL OTHER THERAPEUTIC PRODUCTS (ALL OTHER THERAPEUTIC PRODUCTS) [Concomitant]
  12. LANTUS [Suspect]
     Indication: DIABETES MELLITUS NON-INSULIN-DEPENDENT
     Dosage: 100, SUBCUTANEOUS
     Route: 058
     Dates: start: 20050101

REACTIONS (5)
  - BLOOD GLUCOSE INCREASED [None]
  - INFECTION [None]
  - PARANOIA [None]
  - SEPSIS [None]
  - SOMNOLENCE [None]
